FAERS Safety Report 8519490-8 (Version None)
Quarter: 2012Q3

REPORT INFORMATION
  Report Type: 
  Country: None (occurrence: None)
  Receive Date: 20120718
  Receipt Date: 20120710
  Transmission Date: 20120928
  Serious: Yes (Life-Threatening, Other)
  Sender: FDA-Public Use
  Company Number: PL-PFIZER INC-2012163900

PATIENT
  Age: 62 Year
  Sex: Male

DRUGS (7)
  1. INDAPAMIDE [Concomitant]
     Dosage: UNK
  2. METFORMIN HYDROCHLORIDE [Concomitant]
     Dosage: UNK
  3. RAMIPRIL [Concomitant]
     Dosage: UNK
  4. CORDARONE [Suspect]
     Indication: ATRIAL FIBRILLATION
     Dosage: 100 MG, 1X/DAY
     Route: 042
     Dates: start: 20120628, end: 20120628
  5. ATORVASTATIN [Concomitant]
     Dosage: UNK
  6. METOPROLOL TARTRATE [Concomitant]
     Dosage: UNK
  7. DIAPREL [Concomitant]
     Dosage: UNK

REACTIONS (4)
  - APNOEA [None]
  - LIVIDITY [None]
  - CARDIAC ARREST [None]
  - BRADYCARDIA [None]
